FAERS Safety Report 6584141-9 (Version None)
Quarter: 2010Q1

REPORT INFORMATION
  Report Type: 
  Country: None (occurrence: None)
  Receive Date: 20100216
  Receipt Date: 20100205
  Transmission Date: 20100710
  Serious: Yes (Other)
  Sender: FDA-Public Use
  Company Number: US-JNJFOC-20091007063

PATIENT
  Sex: Female
  Weight: 61.24 kg

DRUGS (14)
  1. LEVAQUIN [Suspect]
     Indication: DRUG USE FOR UNKNOWN INDICATION
     Route: 065
  2. PREDNISON [Suspect]
     Indication: DRUG USE FOR UNKNOWN INDICATION
     Route: 065
  3. STEROIDS NOS [Suspect]
     Indication: ASTHMA
     Route: 048
  4. LOMOTIL [Concomitant]
     Route: 048
  5. PROGESTERONE [Concomitant]
     Route: 065
  6. FLEXERIL [Concomitant]
     Route: 048
  7. MACROBID [Concomitant]
     Route: 065
  8. LEVOTHROID [Concomitant]
     Route: 065
  9. WELLBUTRIN SR [Concomitant]
     Route: 065
  10. OXYBUTYNIN CHLORIDE [Concomitant]
     Route: 065
  11. NORCO [Concomitant]
     Route: 065
  12. TIZANIDINE HCL [Concomitant]
     Route: 065
  13. AZITHROMYCIN [Concomitant]
     Route: 065
  14. NEURONTIN [Concomitant]
     Route: 065

REACTIONS (6)
  - CERVICAL SPINAL STENOSIS [None]
  - INSOMNIA [None]
  - INTERVERTEBRAL DISC DEGENERATION [None]
  - JOINT INJURY [None]
  - MUSCULOSKELETAL PAIN [None]
  - ROTATOR CUFF SYNDROME [None]
